FAERS Safety Report 25820637 (Version 1)
Quarter: 2025Q3

REPORT INFORMATION
  Report Type: Spontaneous
  Country: EU (occurrence: EU)
  Receive Date: 20250919
  Receipt Date: 20250919
  Transmission Date: 20251020
  Serious: Yes (Other)
  Sender: SANDOZ
  Company Number: EU-GERMAN-LIT/NLD/24/0011647

PATIENT
  Age: 52 Year
  Sex: Female

DRUGS (40)
  1. CARFILZOMIB [Suspect]
     Active Substance: CARFILZOMIB
     Indication: Plasma cell myeloma
     Route: 042
  2. CARFILZOMIB [Suspect]
     Active Substance: CARFILZOMIB
     Indication: Immunosuppressant drug therapy
  3. DECADRON (DEXAMETHASONE SODIUM PHOSPHATE) [Suspect]
     Active Substance: DEXAMETHASONE SODIUM PHOSPHATE
     Indication: Plasma cell myeloma
     Route: 048
  4. DECADRON (DEXAMETHASONE SODIUM PHOSPHATE) [Suspect]
     Active Substance: DEXAMETHASONE SODIUM PHOSPHATE
     Indication: Anaphylactic shock
     Route: 065
  5. DECADRON (DEXAMETHASONE SODIUM PHOSPHATE) [Suspect]
     Active Substance: DEXAMETHASONE SODIUM PHOSPHATE
     Route: 065
  6. DECADRON (DEXAMETHASONE SODIUM PHOSPHATE) [Suspect]
     Active Substance: DEXAMETHASONE SODIUM PHOSPHATE
     Route: 065
  7. DECADRON (DEXAMETHASONE SODIUM PHOSPHATE) [Suspect]
     Active Substance: DEXAMETHASONE SODIUM PHOSPHATE
     Route: 065
  8. DECADRON (DEXAMETHASONE SODIUM PHOSPHATE) [Suspect]
     Active Substance: DEXAMETHASONE SODIUM PHOSPHATE
     Indication: Prophylaxis
     Route: 065
  9. FAMOTIDINE [Suspect]
     Active Substance: FAMOTIDINE
     Indication: Anaphylactic shock
     Route: 065
  10. FAMOTIDINE [Suspect]
     Active Substance: FAMOTIDINE
     Indication: Prophylaxis
  11. ISATUXIMAB [Suspect]
     Active Substance: ISATUXIMAB
     Indication: Immunosuppressant drug therapy
     Route: 042
  12. ISATUXIMAB [Suspect]
     Active Substance: ISATUXIMAB
     Route: 042
  13. ISATUXIMAB [Suspect]
     Active Substance: ISATUXIMAB
     Route: 042
  14. ISATUXIMAB [Suspect]
     Active Substance: ISATUXIMAB
     Route: 042
  15. ISATUXIMAB [Suspect]
     Active Substance: ISATUXIMAB
     Route: 042
  16. ISATUXIMAB [Suspect]
     Active Substance: ISATUXIMAB
     Indication: Plasma cell myeloma
     Route: 042
  17. LENALIDOMIDE [Suspect]
     Active Substance: LENALIDOMIDE
     Indication: Product used for unknown indication
     Route: 048
  18. LENALIDOMIDE [Suspect]
     Active Substance: LENALIDOMIDE
     Indication: Immunosuppressant drug therapy
  19. LENALIDOMIDE [Suspect]
     Active Substance: LENALIDOMIDE
     Indication: Plasma cell myeloma
  20. LEVOCETIRIZINE [Suspect]
     Active Substance: LEVOCETIRIZINE
     Indication: Prophylaxis
     Route: 065
  21. LEVOCETIRIZINE [Suspect]
     Active Substance: LEVOCETIRIZINE
     Indication: Anaphylactic shock
  22. MONTELUKAST [Suspect]
     Active Substance: MONTELUKAST
     Indication: Anaphylactic shock
     Route: 065
  23. MONTELUKAST [Suspect]
     Active Substance: MONTELUKAST
     Indication: Prophylaxis
  24. POMALIDOMIDE [Suspect]
     Active Substance: POMALIDOMIDE
     Indication: Plasma cell myeloma
     Route: 065
  25. CLEMASTINE [Concomitant]
     Active Substance: CLEMASTINE
     Indication: Dyspnoea
     Route: 042
  26. CLEMASTINE [Concomitant]
     Active Substance: CLEMASTINE
     Indication: Cough
  27. CLEMASTINE [Concomitant]
     Active Substance: CLEMASTINE
     Indication: Flushing
  28. CLEMASTINE [Concomitant]
     Active Substance: CLEMASTINE
     Indication: Nausea
  29. CLEMASTINE [Concomitant]
     Active Substance: CLEMASTINE
     Indication: Tachycardia
  30. FAMOTIDINE [Concomitant]
     Active Substance: FAMOTIDINE
     Indication: Product used for unknown indication
     Route: 065
  31. LEVOCETIRIZINE [Concomitant]
     Active Substance: LEVOCETIRIZINE
     Indication: Product used for unknown indication
     Route: 065
  32. MELPHALAN [Concomitant]
     Active Substance: MELPHALAN
     Route: 065
  33. MELPHALAN [Concomitant]
     Active Substance: MELPHALAN
     Route: 065
  34. MELPHALAN [Concomitant]
     Active Substance: MELPHALAN
     Indication: Plasma cell myeloma
     Route: 042
  35. MONTELUKAST [Concomitant]
     Active Substance: MONTELUKAST
     Indication: Product used for unknown indication
     Route: 065
  36. PREDNISOLONE [Concomitant]
     Active Substance: PREDNISOLONE
     Indication: Nausea
     Route: 042
  37. PREDNISOLONE [Concomitant]
     Active Substance: PREDNISOLONE
     Indication: Cough
  38. PREDNISOLONE [Concomitant]
     Active Substance: PREDNISOLONE
     Indication: Dyspnoea
  39. PREDNISOLONE [Concomitant]
     Active Substance: PREDNISOLONE
     Indication: Flushing
  40. PREDNISOLONE [Concomitant]
     Active Substance: PREDNISOLONE
     Indication: Tachycardia

REACTIONS (11)
  - Plasma cell myeloma refractory [Unknown]
  - Plasma cell myeloma [Unknown]
  - Drug ineffective [Unknown]
  - Nasal obstruction [Recovered/Resolved]
  - Flushing [Recovered/Resolved]
  - Cough [Recovered/Resolved]
  - Erythema [Recovered/Resolved]
  - Dyspnoea [Recovered/Resolved]
  - Tachycardia [Recovered/Resolved]
  - Dizziness [Recovered/Resolved]
  - Nausea [Recovered/Resolved]
